FAERS Safety Report 5670646-1 (Version None)
Quarter: 2008Q1

REPORT INFORMATION
  Report Type: 
  Country: None (occurrence: None)
  Receive Date: 20080314
  Receipt Date: 20080314
  Transmission Date: 20080703
  Serious: Yes (Other)
  Sender: FDA-Public Use
  Company Number: None

PATIENT
  Age: 5 Year
  Sex: Male
  Weight: 21.7727 kg

DRUGS (1)
  1. TAMIFLU [Suspect]
     Indication: INFLUENZA
     Dosage: 4 ML 2 X DAILY FOR 5 DA PO 72 PLUS HOURS
     Route: 048
     Dates: start: 20080308, end: 20080311

REACTIONS (9)
  - ABNORMAL BEHAVIOUR [None]
  - AGGRESSION [None]
  - AGITATION [None]
  - CONVULSION [None]
  - FEAR [None]
  - FEELING ABNORMAL [None]
  - NIGHTMARE [None]
  - SCREAMING [None]
  - SELF INJURIOUS BEHAVIOUR [None]
